FAERS Safety Report 8888909 (Version 1)
Quarter: 2012Q4

REPORT INFORMATION
  Report Type: 
  Country: US (occurrence: US)
  Receive Date: 20121106
  Receipt Date: 20121106
  Transmission Date: 20130627
  Serious: Yes (Hospitalization)
  Sender: FDA-Public Use
  Company Number: US-ASTRAZENECA-2011SE72543

PATIENT
  Age: 57 Year
  Sex: Male

DRUGS (9)
  1. CRESTOR [Suspect]
     Route: 048
     Dates: start: 201101
  2. SYNTHROID [Concomitant]
  3. METFORMIN [Concomitant]
  4. BUPROPION [Concomitant]
  5. LIPIZIDE [Concomitant]
  6. ASPIRIN [Concomitant]
  7. COZAR [Concomitant]
  8. PLAVIX [Concomitant]
  9. CARBETALOCK [Concomitant]

REACTIONS (1)
  - Pancreatitis [Unknown]
